FAERS Safety Report 4625216-0 (Version None)
Quarter: 2005Q2

REPORT INFORMATION
  Report Type: 
  Country: None (occurrence: None)
  Receive Date: 20050401
  Receipt Date: 20050228
  Transmission Date: 20051028
  Serious: Yes (Death)
  Sender: FDA-Public Use
  Company Number: GB-MERCK-0503GBR00049

PATIENT
  Age: 4 Month
  Sex: Female

DRUGS (6)
  1. DECADRON [Suspect]
     Indication: ACUTE LYMPHOCYTIC LEUKAEMIA
     Route: 048
  2. VINCRISTINE SULFATE [Suspect]
     Indication: ACUTE LYMPHOCYTIC LEUKAEMIA
     Route: 065
  3. ASPARAGINASE (AS DRUG) [Suspect]
     Indication: ACUTE LYMPHOCYTIC LEUKAEMIA
     Route: 065
  4. CYCLOPHOSPHAMIDE [Suspect]
     Indication: ACUTE LYMPHOCYTIC LEUKAEMIA
     Route: 065
  5. CYTARABINE [Suspect]
     Indication: ACUTE LYMPHOCYTIC LEUKAEMIA
     Route: 065
  6. METHOTREXATE [Suspect]
     Route: 065

REACTIONS (13)
  - ADENOVIRAL HEPATITIS [None]
  - ASCITES [None]
  - COAGULOPATHY [None]
  - ENTEROCOLITIS HAEMORRHAGIC [None]
  - FEBRILE NEUTROPENIA [None]
  - GASTRITIS [None]
  - HEPATIC FAILURE [None]
  - HEPATIC HAEMORRHAGE [None]
  - HEPATIC NECROSIS [None]
  - HEPATITIS ACUTE [None]
  - HEPATOMEGALY [None]
  - LIVER ABSCESS [None]
  - SUBARACHNOID HAEMORRHAGE [None]
